FAERS Safety Report 4767753-4 (Version None)
Quarter: 2005Q3

REPORT INFORMATION
  Report Type: 
  Country: None (occurrence: None)
  Receive Date: 20050912
  Receipt Date: 20050905
  Transmission Date: 20060218
  Serious: Yes (Hospitalization)
  Sender: FDA-Public Use
  Company Number: 2004044818

PATIENT
  Age: 68 Year
  Sex: Male
  Weight: 88 kg

DRUGS (7)
  1. ATORVASTATIN CALCIUM [Suspect]
     Indication: ILL-DEFINED DISORDER
     Dosage: 10 MG (1 IN 1 D),
  2. CYAMEMAZINE (CYAMEMAZINE) [Concomitant]
  3. ESOMEPRAZOLE (ESOMEPRAZOLE) [Concomitant]
  4. NADOLOL [Concomitant]
  5. FLUOXETINE [Suspect]
  6. LORAZEPAM [Concomitant]
  7. PRAZEPAM [Concomitant]

REACTIONS (1)
  - MUSCULAR DYSTROPHY [None]
